FAERS Safety Report 23042226 (Version 2)
Quarter: 2023Q4

REPORT INFORMATION
  Report Type: Report from Study
  Country: DE (occurrence: DE)
  Receive Date: 20231008
  Receipt Date: 20231024
  Transmission Date: 20240110
  Serious: Yes (Hospitalization)
  Sender: FDA-Public Use
  Company Number: DE-SA-2018SA186810

PATIENT
  Age: 26 Year
  Sex: Female
  Weight: 65 kg

DRUGS (3)
  1. DUPILUMAB [Suspect]
     Active Substance: DUPILUMAB
     Indication: Dermatitis atopic
     Dosage: 300 MG, QOW
     Route: 058
     Dates: start: 20180607
  2. DUPILUMAB [Suspect]
     Active Substance: DUPILUMAB
     Dosage: QOW
     Route: 058
  3. CHLORMADINONE ACETATE\ETHINYL ESTRADIOL [Suspect]
     Active Substance: CHLORMADINONE ACETATE\ETHINYL ESTRADIOL
     Indication: Contraception
     Dosage: 1 DF, QD
     Route: 048
     Dates: start: 20140401, end: 20190329

REACTIONS (5)
  - Thyroid mass [Recovered/Resolved]
  - Goitre [Not Recovered/Not Resolved]
  - Deep vein thrombosis [Recovering/Resolving]
  - Hypercoagulation [Not Recovered/Not Resolved]
  - Conjunctivitis [Recovering/Resolving]

NARRATIVE: CASE EVENT DATE: 20180618
